FAERS Safety Report 24603771 (Version 1)
Quarter: 2024Q4

REPORT INFORMATION
  Report Type: Report from Study
  Country: FR (occurrence: FR)
  Receive Date: 20241111
  Receipt Date: 20241111
  Transmission Date: 20250115
  Serious: Yes (Hospitalization)
  Sender: ALNYLAM PHARMACEUTICALS
  Company Number: FR-ALNYLAM PHARMACEUTICALS, INC.-ALN-2024-006232

PATIENT

DRUGS (2)
  1. AMVUTTRA [Suspect]
     Active Substance: VUTRISIRAN
     Indication: Product used for unknown indication
     Dosage: 25 MILLIGRAM (ONE PRE-FILLED SYRINGE)
     Route: 058
  2. AMVUTTRA [Suspect]
     Active Substance: VUTRISIRAN
     Dosage: 25 MILLIGRAM (ONE PRE-FILLED SYRINGE)
     Route: 058
     Dates: start: 20241010, end: 20241010

REACTIONS (3)
  - Hospitalisation [Recovered/Resolved]
  - Ear pain [Unknown]
  - Dizziness [Unknown]

NARRATIVE: CASE EVENT DATE: 20241017
